FAERS Safety Report 8476140-7 (Version None)
Quarter: 2012Q2

REPORT INFORMATION
  Report Type: 
  Country: None (occurrence: None)
  Receive Date: 20120628
  Receipt Date: 20120618
  Transmission Date: 20120825
  Serious: Yes (Hospitalization, Other)
  Sender: FDA-Public Use
  Company Number: US-ELI_LILLY_AND_COMPANY-US201012001141

PATIENT
  Sex: Male

DRUGS (14)
  1. LISINOPRIL [Concomitant]
  2. ASPIRIN [Concomitant]
  3. PREDNISONE TAB [Concomitant]
     Indication: PRODUCT USED FOR UNKNOWN INDICATION
  4. NITROGLYCERIN [Concomitant]
     Indication: PRODUCT USED FOR UNKNOWN INDICATION
  5. ADVAIR DISKUS 100/50 [Concomitant]
     Indication: PRODUCT USED FOR UNKNOWN INDICATION
  6. FORTEO [Suspect]
     Dosage: UNK
  7. ALBUTEROL [Concomitant]
     Route: 055
  8. FORTEO [Suspect]
     Indication: OSTEOPOROSIS
     Dosage: 20 UG, DAILY (1/D)
     Dates: start: 20101108, end: 20101111
  9. CRESTOR [Concomitant]
  10. FORTEO [Suspect]
     Dosage: 20 UG, DAILY (1/D)
     Dates: start: 20101115
  11. FORTEO [Suspect]
     Dosage: 20 UG, QD
     Dates: start: 20101201
  12. METFORMIN HCL [Concomitant]
  13. SPIRIVA [Concomitant]
  14. METOPROLOL TARTRATE [Concomitant]
     Indication: PRODUCT USED FOR UNKNOWN INDICATION

REACTIONS (12)
  - DYSPNOEA [None]
  - IMMUNE SYSTEM DISORDER [None]
  - CHRONIC OBSTRUCTIVE PULMONARY DISEASE [None]
  - MUSCULOSKELETAL PAIN [None]
  - MUSCLE SPASMS [None]
  - NECK PAIN [None]
  - MYOCARDIAL INFARCTION [None]
  - VASCULAR OCCLUSION [None]
  - SPINAL FRACTURE [None]
  - UPPER LIMB FRACTURE [None]
  - BACK PAIN [None]
  - RESPIRATORY DISORDER [None]
